FAERS Safety Report 9064673 (Version 1)
Quarter: 2013Q1

REPORT INFORMATION
  Report Type: Spontaneous
  Country: KW (occurrence: KW)
  Receive Date: 20130130
  Receipt Date: 20130130
  Transmission Date: 20140127
  Serious: Yes (Other)
  Sender: FDA-Public Use
  Company Number: KW-ROXANE LABORATORIES, INC.-2013-RO-00153RO

PATIENT
  Age: 57 Year
  Sex: Female

DRUGS (2)
  1. PERINDOPRIL ERBUMINE [Suspect]
     Indication: HYPERTENSION
     Dosage: 10 MG
  2. VERAPAMIL [Suspect]
     Indication: HYPERTENSION
     Dosage: 240 MG

REACTIONS (3)
  - Nodal arrhythmia [Recovered/Resolved]
  - Hyperkalaemia [Recovered/Resolved]
  - Drug ineffective [Unknown]
